FAERS Safety Report 24632448 (Version 2)
Quarter: 2024Q4

REPORT INFORMATION
  Report Type: Spontaneous
  Country: SE (occurrence: SE)
  Receive Date: 20241118
  Receipt Date: 20241202
  Transmission Date: 20250114
  Serious: No
  Sender: MYLAN
  Company Number: SE-MYLANLABS-2024M1102132

PATIENT

DRUGS (1)
  1. EPIPEN JR [Suspect]
     Active Substance: EPINEPHRINE
     Indication: Product used for unknown indication
     Dosage: UNK
     Route: 065

REACTIONS (1)
  - Product quality issue [None]
